FAERS Safety Report 15855468 (Version 1)
Quarter: 2019Q1

REPORT INFORMATION
  Report Type: Spontaneous
  Country: FR (occurrence: FR)
  Receive Date: 20190122
  Receipt Date: 20190122
  Transmission Date: 20190417
  Serious: Yes (Death)
  Sender: FDA-Public Use
  Company Number: PHHY2019FR012958

PATIENT
  Age: 61 Year
  Sex: Male

DRUGS (7)
  1. DOXYCYCLINE SANDOZ [Suspect]
     Active Substance: DOXYCYCLINE
     Indication: ACNE
     Dosage: 1 ?G/L, QD
     Route: 048
     Dates: start: 20181130, end: 20181217
  2. VECTIBIX [Suspect]
     Active Substance: PANITUMUMAB
     Indication: ADENOCARCINOMA
     Dosage: 400 MG, CYCLIC
     Route: 042
     Dates: start: 20181214, end: 20181214
  3. OCTREOTIDE HOSPIRA [Concomitant]
     Active Substance: OCTREOTIDE
     Indication: SUBILEUS
     Dosage: UNK
     Route: 042
  4. OXALIPLATINE ACCORD [Suspect]
     Active Substance: OXALIPLATIN
     Indication: ADENOCARCINOMA
     Dosage: 150 MG, CYCLIC
     Route: 042
  5. METHYLPREDNISOLONE MYLAN [Concomitant]
     Active Substance: METHYLPREDNISOLONE
     Indication: SUBILEUS
     Dosage: UNK
     Route: 042
  6. FLUOROURACIL PFIZER [Suspect]
     Active Substance: FLUOROURACIL
     Indication: ADENOCARCINOMA
     Dosage: 360 MG, CYCLIC
     Route: 042
     Dates: start: 20181214, end: 20181214
  7. OMEPRAZOLE MYLAN [Suspect]
     Active Substance: OMEPRAZOLE
     Indication: PROPHYLAXIS
     Dosage: UNK
     Route: 042

REACTIONS (1)
  - Bone marrow failure [Fatal]

NARRATIVE: CASE EVENT DATE: 20181216
